FAERS Safety Report 7421609-7 (Version None)
Quarter: 2011Q2

REPORT INFORMATION
  Report Type: 
  Country: None (occurrence: None)
  Receive Date: 20110418
  Receipt Date: 20110405
  Transmission Date: 20111010
  Serious: Yes (Death, Other)
  Sender: FDA-Public Use
  Company Number: BE-CELGENEUS-013-21880-11021804

PATIENT
  Age: 80 Year

DRUGS (12)
  1. OMEPRAZOLE [Concomitant]
     Route: 065
  2. REVLIMID [Suspect]
     Dosage: 10 MILLIGRAM
     Route: 048
     Dates: start: 20100820, end: 20101015
  3. CRESTOR [Concomitant]
     Route: 065
  4. CLOPIDOGREL [Concomitant]
     Route: 065
  5. SINTROM [Concomitant]
     Route: 065
  6. SPIRONOLACTONE [Concomitant]
     Route: 065
  7. SYMBICORT [Concomitant]
     Route: 065
  8. AMLODIPINE [Concomitant]
     Route: 065
  9. CODEINE [Concomitant]
     Route: 065
  10. SOTALOL HCL [Concomitant]
     Route: 065
  11. BURINEX [Concomitant]
     Route: 065
  12. ZOLPIDEM [Concomitant]
     Route: 065

REACTIONS (3)
  - THROMBOCYTOPENIA [None]
  - NO THERAPEUTIC RESPONSE [None]
  - MYELODYSPLASTIC SYNDROME [None]
